FAERS Safety Report 8956553 (Version 1)
Quarter: 2012Q4

REPORT INFORMATION
  Report Type: 
  Country: US (occurrence: US)
  Receive Date: 20121210
  Receipt Date: 20121210
  Transmission Date: 20130627
  Serious: Yes (Other)
  Sender: FDA-Public Use
  Company Number: US-PFIZER INC-2012310085

PATIENT
  Sex: Female

DRUGS (2)
  1. LYRICA [Suspect]
     Dosage: 100 mg, 2x/day
     Dates: start: 201211, end: 20121205
  2. LYRICA [Suspect]
     Dosage: 100 mg, 1x/day
     Dates: start: 20121206

REACTIONS (3)
  - Peripheral vascular disorder [Unknown]
  - Skin discolouration [Unknown]
  - Muscle spasms [Unknown]
